FAERS Safety Report 8826429 (Version 1)
Quarter: 2012Q4

REPORT INFORMATION
  Report Type: 
  Country: BR (occurrence: BR)
  Receive Date: 20121005
  Receipt Date: 20121005
  Transmission Date: 20130627
  Serious: Yes (Other)
  Sender: FDA-Public Use
  Company Number: PHHY2012BR086891

PATIENT
  Age: 87 Year
  Sex: Female

DRUGS (2)
  1. DIOVAN [Suspect]
     Indication: BLOOD PRESSURE MANAGEMENT
     Dosage: 2 DF, per day (160 mg) (1 tab in the morning and 1 tab at night)
     Route: 048
  2. FRONTAL [Concomitant]
     Indication: SEDATIVE THERAPY

REACTIONS (2)
  - Transient ischaemic attack [Recovering/Resolving]
  - Rheumatic disorder [Not Recovered/Not Resolved]
